FAERS Safety Report 7708829-9 (Version None)
Quarter: 2011Q3

REPORT INFORMATION
  Report Type: 
  Country: None (occurrence: None)
  Receive Date: 20110825
  Receipt Date: 20110815
  Transmission Date: 20111222
  Serious: Yes (Hospitalization)
  Sender: FDA-Public Use
  Company Number: GB-PFIZER INC-2011187820

PATIENT
  Age: 35 Year
  Sex: Male

DRUGS (10)
  1. DIGOXIN [Concomitant]
     Dosage: 125 UG, 1X/DAY
     Route: 048
  2. RAMIPRIL [Suspect]
     Dosage: 10 MG, 1X/DAY
     Route: 048
  3. BISOPROLOL [Concomitant]
     Dosage: 5 MG, 1X/DAY
     Route: 048
  4. BUMETANIDE [Concomitant]
     Dosage: 1 MG, 2X/DAY
     Route: 048
  5. SIMVASTATIN [Concomitant]
     Dosage: 40 MG, 1X/DAY
     Route: 048
  6. METFORMIN HCL [Suspect]
     Dosage: 1 G, 2X/DAY
     Route: 048
  7. MEBEVERINE [Concomitant]
     Dosage: 135 MG, 3X/DAY
     Route: 048
  8. GLIMEPIRIDE [Suspect]
     Dosage: 4 MG, 1X/DAY
     Route: 048
  9. OMEPRAZOLE [Concomitant]
     Dosage: 20 MG, 1X/DAY
     Route: 048
  10. TRIMETHOPRIM [Concomitant]
     Dosage: 200 MG, 2X/DAY
     Route: 048

REACTIONS (2)
  - HYPOGLYCAEMIA [None]
  - RENAL FAILURE ACUTE [None]
